FAERS Safety Report 9799344 (Version 1)
Quarter: 2014Q1

REPORT INFORMATION
  Report Type: Spontaneous
  Country: BE (occurrence: BE)
  Receive Date: 20140106
  Receipt Date: 20140106
  Transmission Date: 20141002
  Serious: Yes (Life-Threatening, Hospitalization)
  Sender: FDA-Public Use
  Company Number: BE-PFIZER INC-2014001395

PATIENT
  Age: 71 Year
  Sex: Male

DRUGS (7)
  1. LIPITOR [Suspect]
     Dosage: 40 MG, 1X/DAY
     Route: 048
  2. XARELTO [Interacting]
     Indication: ARRHYTHMIA
     Dosage: 20 MG, 1X/DAY
     Route: 048
  3. ZYLORIC [Concomitant]
     Dosage: 100 MG, 1X/DAY
     Route: 048
  4. EMCONCOR [Concomitant]
     Dosage: 10 MG, 1X/DAY
     Route: 048
  5. FRUSAMIL [Concomitant]
     Dosage: 1 DF (5MG/40MG), 1X/DAY
     Route: 048
  6. PERINDOPRIL [Concomitant]
     Dosage: 4 MG, 1X/DAY
     Route: 048
  7. ZOLPIDEM [Concomitant]
     Dosage: 10 MG, 1X/DAY
     Route: 048

REACTIONS (3)
  - Drug interaction [Recovered/Resolved]
  - Peritoneal haemorrhage [Recovered/Resolved]
  - Renal failure [Recovering/Resolving]
